FAERS Safety Report 12859218 (Version 2)
Quarter: 2016Q4

REPORT INFORMATION
  Report Type: Report from Study
  Country: None (occurrence: BR)
  Receive Date: 20161018
  Receipt Date: 20161019
  Transmission Date: 20170207
  Serious: Yes (Other)
  Sender: FDA-Public Use
  Company Number: BR-ABBVIE-16K-020-1751726-00

PATIENT
  Age: 60 Year
  Sex: Female
  Weight: 80 kg

DRUGS (20)
  1. PANTOCAL [Concomitant]
     Indication: GASTRIC DISORDER
     Route: 048
     Dates: start: 1996
  2. COLAGEN [Concomitant]
     Indication: CHONDROPATHY
     Route: 048
     Dates: start: 2013
  3. HUMIRA [Suspect]
     Active Substance: ADALIMUMAB
     Indication: ANKYLOSING SPONDYLITIS
     Route: 058
     Dates: start: 20140819
  4. LOSARTAN. [Concomitant]
     Active Substance: LOSARTAN
     Indication: HYPERTENSION
     Route: 048
     Dates: start: 2011
  5. GLUCOSAMINE [Concomitant]
     Active Substance: GLUCOSAMINE
     Indication: CHONDROPATHY
     Route: 048
     Dates: start: 2013
  6. BORON CHELATE [Concomitant]
     Indication: CHONDROPATHY
     Route: 048
     Dates: start: 2013
  7. EUTHYROX [Concomitant]
     Active Substance: LEVOTHYROXINE SODIUM
     Indication: HYPOTHYROIDISM
     Route: 048
  8. METHYLSULFONYLMETHANE [Concomitant]
     Active Substance: DIMETHYL SULFONE
     Indication: CHONDROPATHY
     Route: 048
     Dates: start: 2013
  9. STAVIGILE [Concomitant]
     Active Substance: MODAFINIL
     Indication: ASTHENIA
     Route: 048
     Dates: start: 2011
  10. ATENOLOL. [Concomitant]
     Active Substance: ATENOLOL
     Indication: CARDIAC DISORDER
     Route: 048
  11. METHOTREXATE. [Concomitant]
     Active Substance: METHOTREXATE
     Indication: SPONDYLITIS
     Route: 048
     Dates: start: 2013
  12. CHONDROITIN [Concomitant]
     Active Substance: CHONDROITIN
     Indication: CHONDROPATHY
     Route: 048
     Dates: start: 2013
  13. VITAMIN C [Concomitant]
     Active Substance: ASCORBIC ACID
     Indication: CHONDROPATHY
     Route: 048
     Dates: start: 2013
  14. MANGANESE SULFATE. [Concomitant]
     Active Substance: MANGANESE SULFATE
     Indication: CHONDROPATHY
     Route: 048
     Dates: start: 2013
  15. SOMALGIN [Concomitant]
     Active Substance: ASPIRIN\DIHYDROXYALUMINUM AMINOACETATE ANHYDROUS\MAGNESIUM CARBONATE
     Indication: ANTICOAGULANT THERAPY
     Route: 048
  16. DONAREN [Concomitant]
     Active Substance: TRAZODONE HYDROCHLORIDE
     Indication: SLEEP DISORDER THERAPY
     Route: 048
  17. BOSWELLIA SERRATA [Concomitant]
     Indication: CHONDROPATHY
     Route: 048
     Dates: start: 2013
  18. PANTOCAL [Concomitant]
     Indication: PROPHYLAXIS
  19. ANCORON [Concomitant]
     Active Substance: AMIODARONE HYDROCHLORIDE
     Indication: CARDIAC DISORDER
     Route: 048
  20. ENDOFOLIN [Concomitant]
     Active Substance: FOLIC ACID
     Indication: PRODUCT USED FOR UNKNOWN INDICATION
     Route: 048
     Dates: start: 2013

REACTIONS (12)
  - Localised infection [Recovering/Resolving]
  - Peripheral swelling [Recovering/Resolving]
  - Injury [Not Recovered/Not Resolved]
  - Post procedural swelling [Unknown]
  - Post procedural inflammation [Not Recovered/Not Resolved]
  - Postoperative wound complication [Unknown]
  - Injection site erythema [Recovered/Resolved]
  - Injection site bruising [Recovered/Resolved]
  - Osteomyelitis bacterial [Recovered/Resolved]
  - Postoperative wound infection [Not Recovered/Not Resolved]
  - Erythema [Recovering/Resolving]
  - Skin mass [Unknown]

NARRATIVE: CASE EVENT DATE: 2016
